FAERS Safety Report 13510776 (Version 1)
Quarter: 2017Q2

REPORT INFORMATION
  Report Type: Spontaneous
  Country: US (occurrence: US)
  Receive Date: 20170503
  Receipt Date: 20170503
  Transmission Date: 20170830
  Serious: No
  Sender: FDA-Public Use
  Company Number: US-BAYER-2017-078250

PATIENT
  Age: 69 Year
  Sex: Female
  Weight: 71.97 kg

DRUGS (2)
  1. MIRALAX [Suspect]
     Active Substance: POLYETHYLENE GLYCOL 3350
     Indication: COLONOSCOPY
     Dosage: ALL AT ONCE DOSE
     Route: 048
     Dates: start: 20170424, end: 20170425
  2. DULCOLAX (BISACODYL) [Concomitant]
     Active Substance: BISACODYL

REACTIONS (3)
  - Product use issue [Unknown]
  - Expired product administered [None]
  - Off label use [Unknown]

NARRATIVE: CASE EVENT DATE: 20170424
